FAERS Safety Report 12665687 (Version 2)
Quarter: 2016Q3

REPORT INFORMATION
  Report Type: Spontaneous
  Country: US (occurrence: US)
  Receive Date: 20160818
  Receipt Date: 20160906
  Transmission Date: 20161109
  Serious: Yes (Other)
  Sender: FDA-Public Use
  Company Number: US-ALLERGAN-1665951US

PATIENT
  Age: 82 Year
  Sex: Male
  Weight: 87.75 kg

DRUGS (2)
  1. RESTASIS [Suspect]
     Active Substance: CYCLOSPORINE
     Indication: DRY EYE
     Dosage: 2 GTT, BID
     Route: 047
     Dates: start: 2015, end: 201607
  2. BABY ASPIRIN [Concomitant]
     Active Substance: ASPIRIN
     Dosage: UNK UNK, QD
     Route: 048

REACTIONS (4)
  - Cataract [Unknown]
  - Vision blurred [Not Recovered/Not Resolved]
  - Coronary artery disease [Unknown]
  - Eye discharge [Not Recovered/Not Resolved]
